FAERS Safety Report 12257058 (Version 2)
Quarter: 2016Q4

REPORT INFORMATION
  Report Type: Spontaneous
  Country: CN (occurrence: CN)
  Receive Date: 20160412
  Receipt Date: 20161031
  Transmission Date: 20170207
  Serious: Yes (Death, Hospitalization, Other)
  Sender: FDA-Public Use
  Company Number: CN-SA-2016SA060562

PATIENT
  Sex: Male

DRUGS (16)
  1. BLEOMYCIN [Suspect]
     Active Substance: BLEOMYCIN SULFATE
     Indication: RICHTER^S SYNDROME
     Route: 065
     Dates: start: 201106
  2. BLEOMYCIN [Suspect]
     Active Substance: BLEOMYCIN SULFATE
     Indication: RICHTER^S SYNDROME
     Route: 065
     Dates: start: 2011
  3. VINBLASTINE [Suspect]
     Active Substance: VINBLASTINE
     Indication: RICHTER^S SYNDROME
     Route: 065
     Dates: start: 2011
  4. OXALIPLATIN. [Suspect]
     Active Substance: OXALIPLATIN
     Indication: RICHTER^S SYNDROME
     Route: 065
     Dates: start: 2011, end: 2011
  5. DACARBAZINE. [Suspect]
     Active Substance: DACARBAZINE
     Indication: RICHTER^S SYNDROME
     Route: 065
     Dates: start: 201106
  6. DOXORUBICIN [Suspect]
     Active Substance: DOXORUBICIN
     Indication: WALDENSTROM^S MACROGLOBULINAEMIA
     Route: 065
     Dates: start: 201106
  7. VINBLASTINE [Suspect]
     Active Substance: VINBLASTINE
     Indication: RICHTER^S SYNDROME
     Route: 065
     Dates: start: 201106
  8. DOXORUBICIN [Suspect]
     Active Substance: DOXORUBICIN
     Indication: WALDENSTROM^S MACROGLOBULINAEMIA
     Route: 065
     Dates: start: 2011
  9. DOXORUBICIN [Suspect]
     Active Substance: DOXORUBICIN
     Indication: HODGKIN^S DISEASE MIXED CELLULARITY STAGE UNSPECIFIED
     Route: 065
     Dates: start: 2011
  10. DECITABINE. [Suspect]
     Active Substance: DECITABINE
     Indication: CHEMOTHERAPY
     Route: 065
     Dates: start: 2011, end: 2011
  11. DACARBAZINE. [Suspect]
     Active Substance: DACARBAZINE
     Indication: RICHTER^S SYNDROME
     Route: 065
     Dates: start: 2011
  12. FLUDARABINE PHOSPHATE. [Suspect]
     Active Substance: FLUDARABINE PHOSPHATE
     Indication: WALDENSTROM^S MACROGLOBULINAEMIA
     Route: 065
     Dates: start: 200810, end: 200812
  13. CYCLOPHOSPHAMIDE. [Suspect]
     Active Substance: CYCLOPHOSPHAMIDE
     Indication: WALDENSTROM^S MACROGLOBULINAEMIA
     Route: 065
     Dates: start: 200810, end: 200812
  14. DOXORUBICIN [Suspect]
     Active Substance: DOXORUBICIN
     Indication: HODGKIN^S DISEASE MIXED CELLULARITY STAGE UNSPECIFIED
     Route: 065
     Dates: start: 201106
  15. VINBLASTINE [Suspect]
     Active Substance: VINBLASTINE
     Indication: HODGKIN^S DISEASE MIXED CELLULARITY STAGE UNSPECIFIED
     Route: 065
     Dates: start: 2011
  16. VINBLASTINE [Suspect]
     Active Substance: VINBLASTINE
     Indication: HODGKIN^S DISEASE MIXED CELLULARITY STAGE UNSPECIFIED
     Route: 065
     Dates: start: 201106

REACTIONS (19)
  - Vision blurred [Fatal]
  - Dizziness [Fatal]
  - Hodgkin^s disease mixed cellularity stage unspecified [Fatal]
  - Richter^s syndrome [Fatal]
  - Fatigue [Fatal]
  - Beta 2 microglobulin increased [Fatal]
  - Drug ineffective [Unknown]
  - Neck pain [Fatal]
  - Respiratory failure [Fatal]
  - Supraventricular extrasystoles [Unknown]
  - Biopsy lymph gland abnormal [Fatal]
  - Light chain analysis increased [Fatal]
  - Red blood cell sedimentation rate increased [Fatal]
  - Pyrexia [Fatal]
  - Lymphadenopathy [Fatal]
  - Sepsis [Fatal]
  - Night sweats [Fatal]
  - Headache [Fatal]
  - Disease progression [Fatal]

NARRATIVE: CASE EVENT DATE: 2011
